FAERS Safety Report 11197477 (Version 1)
Quarter: 2015Q2

REPORT INFORMATION
  Report Type: Spontaneous
  Country: US (occurrence: US)
  Receive Date: 20150617
  Receipt Date: 20150617
  Transmission Date: 20150821
  Serious: Yes (Death)
  Sender: FDA-Public Use
  Company Number: US-ASTELLAS-2015US020804

PATIENT
  Age: 54 Year
  Sex: Male

DRUGS (1)
  1. XTANDI [Suspect]
     Active Substance: ENZALUTAMIDE
     Indication: PROSTATE CANCER
     Dosage: 160 MG (4 CAPSULES), ONCE DAILY
     Route: 048
     Dates: start: 20141027, end: 20150422

REACTIONS (5)
  - Blood magnesium decreased [Unknown]
  - Blood glucose abnormal [Recovered/Resolved]
  - Death [Fatal]
  - Blood potassium decreased [Unknown]
  - Blood calcium decreased [Unknown]

NARRATIVE: CASE EVENT DATE: 20150604
